FAERS Safety Report 23999339 (Version 1)
Quarter: 2024Q2

REPORT INFORMATION
  Report Type: Spontaneous
  Country: JP (occurrence: JP)
  Receive Date: 20240621
  Receipt Date: 20240621
  Transmission Date: 20240716
  Serious: Yes (Other)
  Sender: FDA-Public Use
  Company Number: JP-SUN PHARMACEUTICAL INDUSTRIES LTD-2024R1-451567

PATIENT
  Age: 4 Month
  Sex: Female

DRUGS (2)
  1. PAZOPANIB [Suspect]
     Active Substance: PAZOPANIB
     Indication: Congenital fibrosarcoma
     Dosage: 5 MILLIGRAM/KILOGRAM, DAILY
     Route: 065
  2. PAZOPANIB [Suspect]
     Active Substance: PAZOPANIB
     Dosage: 15 MILLIGRAM/KILOGRAM, DAILY
     Route: 065

REACTIONS (1)
  - Disease recurrence [Recovered/Resolved]
